FAERS Safety Report 19833783 (Version 2)
Quarter: 2021Q4

REPORT INFORMATION
  Report Type: Report from Study
  Country: US (occurrence: US)
  Receive Date: 20210914
  Receipt Date: 20211006
  Transmission Date: 20220303
  Serious: Yes (Other)
  Sender: FDA-Public Use
  Company Number: 2021A719817

PATIENT
  Age: 75 Year
  Sex: Female
  Weight: 95.7 kg

DRUGS (1)
  1. BUDESONIDE\FORMOTEROL\GLYCOPYRRONIUM [Suspect]
     Active Substance: BUDESONIDE\FORMOTEROL\GLYCOPYRRONIUM
     Indication: Chronic obstructive pulmonary disease
     Dosage: UNKNOWN
     Route: 055
     Dates: start: 20201122

REACTIONS (2)
  - Loss of consciousness [Unknown]
  - Dizziness [Unknown]
